FAERS Safety Report 6594472-4 (Version None)
Quarter: 2010Q1

REPORT INFORMATION
  Report Type: 
  Country: None (occurrence: None)
  Receive Date: 20100222
  Receipt Date: 20100120
  Transmission Date: 20100710
  Serious: No
  Sender: FDA-Public Use
  Company Number: US-BAYER-201011092BCC

PATIENT
  Sex: Female
  Weight: 61 kg

DRUGS (3)
  1. ALEVE [Suspect]
     Indication: PAIN IN EXTREMITY
     Dosage: TOTAL DAILY DOSE: 220 MG  UNIT DOSE: 220 MG
     Route: 048
     Dates: start: 20091230
  2. NATURE BOUNTY CALCIUM [Concomitant]
  3. PERCOCET [Concomitant]

REACTIONS (5)
  - CHAPPED LIPS [None]
  - DRY SKIN [None]
  - PAIN IN EXTREMITY [None]
  - SCAB [None]
  - THIRST [None]
